FAERS Safety Report 11834655 (Version 2)
Quarter: 2015Q4

REPORT INFORMATION
  Report Type: Report from Study
  Country: AU (occurrence: AU)
  Receive Date: 20151214
  Receipt Date: 20151221
  Transmission Date: 20160305
  Serious: Yes (Hospitalization)
  Sender: FDA-Public Use
  Company Number: AU-BIOMARINAP-AU-2015-108246

PATIENT
  Age: 4 Year
  Sex: Male
  Weight: 18 kg

DRUGS (2)
  1. BMN 110 [Suspect]
     Active Substance: ELOSULFASE ALFA
     Indication: MUCOPOLYSACCHARIDOSIS IV
     Dosage: 2 MG/ML, QW
     Route: 042
     Dates: start: 20131127
  2. ONDANSETRON [Concomitant]
     Active Substance: ONDANSETRON
     Indication: PREMEDICATION
     Dosage: 2 MG, SINGLE
     Route: 042
     Dates: start: 20150302, end: 20150302

REACTIONS (1)
  - Knee deformity [Recovered/Resolved]

NARRATIVE: CASE EVENT DATE: 20150302
